FAERS Safety Report 6697166-X (Version None)
Quarter: 2010Q2

REPORT INFORMATION
  Report Type: 
  Country: None (occurrence: None)
  Receive Date: 20100426
  Receipt Date: 20100415
  Transmission Date: 20101027
  Serious: Yes (Other)
  Sender: FDA-Public Use
  Company Number: AU-PFIZER INC-2010047939

PATIENT
  Age: 55 Year
  Sex: Female

DRUGS (2)
  1. CHAMPIX [Suspect]
     Indication: SMOKING CESSATION THERAPY
     Dosage: 1 MG, 2X/DAY
     Route: 048
     Dates: start: 20100315, end: 20100415
  2. ACETAMINOPHEN W/ CODEINE [Concomitant]
     Dosage: UNK

REACTIONS (3)
  - DRY MOUTH [None]
  - DYSTONIA [None]
  - OROMANDIBULAR DYSTONIA [None]
